FAERS Safety Report 6286282-2 (Version None)
Quarter: 2009Q3

REPORT INFORMATION
  Report Type: 
  Country: None (occurrence: None)
  Receive Date: 20090728
  Receipt Date: 20090715
  Transmission Date: 20100115
  Serious: Yes (Other)
  Sender: FDA-Public Use
  Company Number: CA-PFIZER INC-2009241421

PATIENT
  Age: 53 Year

DRUGS (11)
  1. ZOLOFT [Suspect]
     Indication: SUICIDAL IDEATION
     Dosage: 50 MG, 1X/DAY
     Dates: start: 20070101
  2. ZOLOFT [Suspect]
     Indication: AGGRESSION
     Dosage: 25 MG, 1X/DAY
  3. ZOLOFT [Suspect]
     Dosage: 25 MG, ALTERNATE DAY
     Dates: end: 20090701
  4. PLAVIX [Concomitant]
     Dosage: 75 MG, 1X/DAY
  5. CRESTOR [Concomitant]
     Dosage: 10 MG, 1X/DAY
  6. CARVEDILOL [Concomitant]
     Dosage: 6.25 MG, 2X/DAY
  7. SYNTHROID [Concomitant]
     Indication: THYROIDECTOMY
     Dosage: 200 UG, 1X/DAY
  8. ATIVAN [Concomitant]
     Dosage: 0.5 MG, TWICE DAILY, AS NEEDED
     Route: 060
  9. COZAAR [Concomitant]
     Dosage: 50 MG, 1X/DAY
  10. FUROSEMIDE [Concomitant]
     Dosage: 40 MG, 1X/DAY
  11. ALLOPURINOL [Concomitant]
     Dosage: 300 MG, 1X/DAY

REACTIONS (13)
  - AGGRESSION [None]
  - ANGER [None]
  - ANXIETY [None]
  - BRUXISM [None]
  - CONFUSIONAL STATE [None]
  - DEPRESSION [None]
  - DIZZINESS [None]
  - INSOMNIA [None]
  - IRRITABILITY [None]
  - MEMORY IMPAIRMENT [None]
  - PARAESTHESIA [None]
  - TREMOR [None]
  - WITHDRAWAL SYNDROME [None]
